FAERS Safety Report 5967755-6 (Version None)
Quarter: 2008Q4

REPORT INFORMATION
  Report Type: 
  Country: None (occurrence: None)
  Receive Date: 20081126
  Receipt Date: 20081117
  Transmission Date: 20090506
  Serious: Yes (Hospitalization)
  Sender: FDA-Public Use
  Company Number: FR-JNJFOC-20081104037

PATIENT
  Sex: Male

DRUGS (5)
  1. RISPERDAL [Suspect]
     Indication: CONFUSIONAL STATE
     Route: 048
  2. SKENAN [Interacting]
     Indication: PAIN
     Route: 048
  3. SOLUPRED [Concomitant]
     Route: 048
  4. NEXIUM [Concomitant]
     Route: 048
  5. SEROPRAM [Concomitant]
     Route: 048

REACTIONS (2)
  - COMA [None]
  - DRUG INTERACTION [None]
